FAERS Safety Report 4363916-0 (Version None)
Quarter: 2004Q2

REPORT INFORMATION
  Report Type: 
  Country: None (occurrence: None)
  Receive Date: 20040524
  Receipt Date: 20040524
  Transmission Date: 20050107
  Serious: Yes (Hospitalization)
  Sender: FDA-Public Use
  Company Number: None

PATIENT
  Age: 79 Year
  Sex: Male
  Weight: 45.4 kg

DRUGS (21)
  1. GATIFLOXACIN [Suspect]
  2. SYNTHROID [Concomitant]
  3. DIPHENHYDRAMINE HCL [Concomitant]
  4. MICONAZOLE NITRATE [Concomitant]
  5. FUROSEMIDE [Concomitant]
  6. SIMVASTATIN [Concomitant]
  7. MULTIVITAMINE /ZINC (CENTRIUM) [Concomitant]
  8. MEGESTROL ACETATE [Concomitant]
  9. IPRATROPIUM BROMIDE [Concomitant]
  10. GUAIFENESIN [Concomitant]
  11. FERROUS SULFATE TAB [Concomitant]
  12. FELODIPINE [Concomitant]
  13. ASPIRIN [Concomitant]
  14. ALBUTEROL [Concomitant]
  15. NITROGLYCERIN [Concomitant]
  16. MAGNESIUM HYDROXIDE TAB [Concomitant]
  17. ACETAMINOPHEN [Concomitant]
  18. HYDROCHLOROTHIAZIDE [Concomitant]
  19. ZINC OXIDE [Concomitant]
  20. CODEINE 30 MG/ACETAMINOPHENE [Concomitant]
  21. PIPBRACILLIN/TAZOBACTAM [Concomitant]

REACTIONS (1)
  - RASH [None]
